FAERS Safety Report 7222854-6 (Version None)
Quarter: 2011Q1

REPORT INFORMATION
  Report Type: 
  Country: None (occurrence: None)
  Receive Date: 20110112
  Receipt Date: 20100930
  Transmission Date: 20110831
  Serious: Yes (Hospitalization)
  Sender: FDA-Public Use
  Company Number: US-BAYER-201023621NA

PATIENT
  Sex: Female
  Weight: 113.6 kg

DRUGS (8)
  1. MORPHINE [Concomitant]
     Indication: PAIN
  2. BYETTA [Concomitant]
  3. FERROUS SULFATE [Concomitant]
     Dosage: 1-2 TABS DAILY
  4. YASMIN [Suspect]
     Indication: PAIN
     Route: 048
     Dates: start: 20080422, end: 20080501
  5. ATIVAN [Concomitant]
  6. SYNTHROID [Concomitant]
     Indication: HYPOTHYROIDISM
     Dates: start: 20020101
  7. ACETAMINOPHEN [Concomitant]
     Indication: PAIN
     Dosage: AS NEEDED
  8. DEPO-PROVERA [Concomitant]
     Dates: start: 20080501

REACTIONS (7)
  - CHILLS [None]
  - DIZZINESS [None]
  - PULMONARY EMBOLISM [None]
  - TREMOR [None]
  - CHEST PAIN [None]
  - COUGH [None]
  - DYSPNOEA [None]
